FAERS Safety Report 9246561 (Version 2)
Quarter: 2013Q2

REPORT INFORMATION
  Report Type: Spontaneous
  Country: US (occurrence: US)
  Receive Date: 20130422
  Receipt Date: 20130502
  Transmission Date: 20140414
  Serious: No
  Sender: FDA-Public Use
  Company Number: US-PFIZER INC-2013125236

PATIENT
  Age: 51 Year
  Sex: Female
  Weight: 68.03 kg

DRUGS (5)
  1. LYRICA [Suspect]
     Indication: NEUROPATHY PERIPHERAL
     Dosage: TWO CAPSULES OF 150 MG IN MORNING AND ONE CAPSULE OF 150MG AT NIGHT
  2. LYRICA [Suspect]
     Dosage: 225 MG, UNK
  3. METFORMIN [Concomitant]
     Indication: DIABETES MELLITUS
     Dosage: 1000 MG, UNK
  4. VITAMIN B12 [Concomitant]
     Indication: NEUROPATHY PERIPHERAL
     Dosage: UNK
  5. SYNTHROID [Concomitant]
     Indication: HYPOTHYROIDISM
     Dosage: 20 UG, UNK

REACTIONS (2)
  - Intentional drug misuse [Unknown]
  - Burning sensation [Not Recovered/Not Resolved]
